FAERS Safety Report 6245110-1 (Version None)
Quarter: 2009Q2

REPORT INFORMATION
  Report Type: 
  Country: None (occurrence: None)
  Receive Date: 20090623
  Receipt Date: 20090623
  Transmission Date: 20091009
  Serious: No
  Sender: FDA-Public Use
  Company Number: None

PATIENT
  Sex: Female
  Weight: 68.0396 kg

DRUGS (1)
  1. SEROQUEL XR [Suspect]
     Dates: start: 20090301, end: 20090401

REACTIONS (7)
  - APPETITE DISORDER [None]
  - BLOOD GLUCOSE INCREASED [None]
  - BLOOD PRESSURE INCREASED [None]
  - CATARACT [None]
  - CONDITION AGGRAVATED [None]
  - INTRAOCULAR PRESSURE INCREASED [None]
  - WEIGHT INCREASED [None]
